FAERS Safety Report 22001006 (Version 1)
Quarter: 2023Q1

REPORT INFORMATION
  Report Type: Other
  Country: CN (occurrence: CN)
  Receive Date: 20230216
  Receipt Date: 20230216
  Transmission Date: 20230417
  Serious: No
  Sender: FDA-Public Use
  Company Number: CN-CSTONE PHARMACEUTICALS (SUZHOU) CO., LTD.-2023CN00086

PATIENT

DRUGS (1)
  1. AYVAKIT [Suspect]
     Active Substance: AVAPRITINIB
     Indication: Product used for unknown indication
     Dosage: 100 MILLIGRAM, PER DAY
     Route: 048
     Dates: start: 20221206

REACTIONS (3)
  - Poor quality sleep [Unknown]
  - Asthenia [Unknown]
  - White blood cell count decreased [Unknown]
